FAERS Safety Report 18624037 (Version 1)
Quarter: 2020Q4

REPORT INFORMATION
  Report Type: Spontaneous
  Country: US (occurrence: US)
  Receive Date: 20201216
  Receipt Date: 20201216
  Transmission Date: 20210114
  Serious: No
  Sender: FDA-Public Use
  Company Number: US-BAXTER-2020BAX024831

PATIENT

DRUGS (4)
  1. REGULAR HUMAN INSULIN [Suspect]
     Active Substance: INSULIN HUMAN
     Dosage: 10 UNITS PER HOUR
     Route: 042
     Dates: start: 20201127, end: 20201127
  2. REGULAR HUMAN INSULIN [Suspect]
     Active Substance: INSULIN HUMAN
     Dosage: 30 UNITS PER HOUR
     Route: 042
     Dates: start: 20201127, end: 20201127
  3. REGULAR HUMAN INSULIN [Suspect]
     Active Substance: INSULIN HUMAN
     Indication: BLOOD GLUCOSE ABNORMAL
     Dosage: 5 UNITS PER HOUR
     Route: 042
     Dates: start: 20201127, end: 20201127
  4. REGULAR HUMAN INSULIN [Suspect]
     Active Substance: INSULIN HUMAN
     Dosage: 20 UNITS PER HOUR
     Route: 042
     Dates: start: 20201127, end: 20201127

REACTIONS (2)
  - Product use issue [Unknown]
  - Drug ineffective [Recovered/Resolved]

NARRATIVE: CASE EVENT DATE: 20201127
